FAERS Safety Report 6583317-4 (Version None)
Quarter: 2010Q1

REPORT INFORMATION
  Report Type: 
  Country: None (occurrence: None)
  Receive Date: 20100216
  Receipt Date: 20100203
  Transmission Date: 20100710
  Serious: Yes (Hospitalization)
  Sender: FDA-Public Use
  Company Number: JP-SANOFI-AVENTIS-2010SA006710

PATIENT
  Age: 71 Year
  Sex: Female

DRUGS (13)
  1. ELPLAT [Suspect]
     Indication: COLON CANCER METASTATIC
     Route: 041
     Dates: start: 20080220, end: 20080220
  2. ELPLAT [Suspect]
     Route: 041
  3. 5-FU [Suspect]
     Indication: COLON CANCER METASTATIC
     Route: 041
     Dates: start: 20080220, end: 20080220
  4. 5-FU [Suspect]
     Route: 041
  5. ISOVORIN [Suspect]
     Indication: COLON CANCER METASTATIC
     Route: 041
     Dates: start: 20080220, end: 20080220
  6. ISOVORIN [Suspect]
     Route: 041
  7. AVASTIN [Suspect]
     Indication: COLON CANCER METASTATIC
     Route: 041
     Dates: start: 20080402, end: 20080402
  8. AVASTIN [Suspect]
     Route: 041
  9. ZOFRAN [Concomitant]
     Dates: start: 20080221, end: 20090116
  10. DECADRON /CAN/ [Concomitant]
     Dates: start: 20080221, end: 20090116
  11. PRIMPERAN TAB [Concomitant]
     Dates: start: 20080221, end: 20090116
  12. THYRADIN S [Concomitant]
     Dates: start: 20080129, end: 20090206
  13. AMOBAN [Concomitant]
     Dates: start: 20080129, end: 20090206

REACTIONS (4)
  - GASTRIC ULCER [None]
  - HYPERTENSION [None]
  - NEUROPATHY PERIPHERAL [None]
  - NEUTROPHIL COUNT DECREASED [None]
